FAERS Safety Report 22644160 (Version 3)
Quarter: 2023Q4

REPORT INFORMATION
  Report Type: Spontaneous
  Country: JP (occurrence: JP)
  Receive Date: 20230627
  Receipt Date: 20231208
  Transmission Date: 20240109
  Serious: Yes (Death, Hospitalization, Other)
  Sender: FDA-Public Use
  Company Number: JP-MSD-M2023-24602

PATIENT
  Age: 68 Year
  Sex: Male
  Weight: 62.5 kg

DRUGS (3)
  1. BRIDION [Suspect]
     Active Substance: SUGAMMADEX
     Indication: Neuromuscular blockade reversal
     Dosage: 200 MILLIGRAM, ONCE
     Route: 042
     Dates: start: 202305, end: 202305
  2. BRIDION [Suspect]
     Active Substance: SUGAMMADEX
     Dosage: 200 MILLIGRAM
     Route: 042
     Dates: start: 202305, end: 202305
  3. ROCURONIUM BROMIDE [Concomitant]
     Active Substance: ROCURONIUM BROMIDE
     Dosage: 210 MILLIGRAM
     Route: 042
     Dates: start: 202305, end: 202305

REACTIONS (2)
  - Postresuscitation encephalopathy [Fatal]
  - Cardio-respiratory arrest [Recovered/Resolved]

NARRATIVE: CASE EVENT DATE: 20230501
